FAERS Safety Report 7945950-4 (Version None)
Quarter: 2011Q4

REPORT INFORMATION
  Report Type: 
  Country: None (occurrence: None)
  Receive Date: 20111129
  Receipt Date: 20111126
  Transmission Date: 20120403
  Serious: Yes (Death, Hospitalization)
  Sender: FDA-Public Use
  Company Number: PHHY2011BR103757

PATIENT
  Sex: Male

DRUGS (1)
  1. STALEVO 100 [Suspect]
     Indication: PARKINSON'S DISEASE
     Dosage: 100/25/200 MG
     Route: 048

REACTIONS (2)
  - DEATH [None]
  - RENAL FAILURE [None]
